FAERS Safety Report 7306071-7 (Version None)
Quarter: 2011Q1

REPORT INFORMATION
  Report Type: 
  Country: None (occurrence: None)
  Receive Date: 20110222
  Receipt Date: 20110210
  Transmission Date: 20110831
  Serious: Yes (Other)
  Sender: FDA-Public Use
  Company Number: FR-TEVA-240206ISR

PATIENT
  Sex: Male

DRUGS (4)
  1. RAMIPRIL [Concomitant]
     Indication: HYPERTENSION
     Route: 048
  2. AZILECT [Suspect]
     Indication: PARKINSON'S DISEASE
     Route: 048
     Dates: start: 20100226, end: 20100308
  3. ROPINIROLE [Concomitant]
     Indication: PARKINSON'S DISEASE
     Route: 048
  4. SIMVASTATIN [Concomitant]
     Indication: HYPERCHOLESTEROLAEMIA
     Route: 048

REACTIONS (4)
  - TREMOR [None]
  - DYSPHEMIA [None]
  - PSYCHOMOTOR HYPERACTIVITY [None]
  - MUSCLE SPASMS [None]
